FAERS Safety Report 7497109-5 (Version None)
Quarter: 2011Q2

REPORT INFORMATION
  Report Type: 
  Country: None (occurrence: None)
  Receive Date: 20110523
  Receipt Date: 20110510
  Transmission Date: 20111010
  Serious: Yes (Other)
  Sender: FDA-Public Use
  Company Number: PHHY2011CA38864

PATIENT
  Age: 10 Year
  Sex: Male
  Weight: 48.4 kg

DRUGS (2)
  1. PREDNISONE [Suspect]
     Dosage: 40 MG/M2, EVERY SECOND DAY FOR ANOTHER  SIX WEEKS
  2. PREDNISONE [Suspect]
     Indication: NEPHROTIC SYNDROME
     Dosage: 60 MG/M2, QD FOR SIX WEEKS
     Route: 048

REACTIONS (7)
  - ACTIVITIES OF DAILY LIVING IMPAIRED [None]
  - OSTEOPOROSIS [None]
  - HYPOVITAMINOSIS [None]
  - BONE DISORDER [None]
  - SPINAL FRACTURE [None]
  - BACK PAIN [None]
  - GLOMERULONEPHRITIS PROLIFERATIVE [None]
